FAERS Safety Report 17353465 (Version 2)
Quarter: 2020Q1

REPORT INFORMATION
  Report Type: Spontaneous
  Country: US (occurrence: US)
  Receive Date: 20200131
  Receipt Date: 20200227
  Transmission Date: 20200409
  Serious: No
  Sender: FDA-Public Use
  Company Number: US-ASTRAZENECA-2020SE13846

PATIENT
  Age: 3804 Week
  Sex: Female
  Weight: 71.7 kg

DRUGS (1)
  1. SYMBICORT [Suspect]
     Active Substance: BUDESONIDE\FORMOTEROL FUMARATE DIHYDRATE
     Indication: CHRONIC OBSTRUCTIVE PULMONARY DISEASE
     Dosage: SYMBICORT 80/4.5 MCG, 2 PUFFS TWO TIMES A DAY
     Route: 055
     Dates: start: 2019

REACTIONS (14)
  - Sinus disorder [Unknown]
  - Bronchial disorder [Unknown]
  - Device issue [Unknown]
  - Chest discomfort [Unknown]
  - Sinus congestion [Recovered/Resolved]
  - Secretion discharge [Unknown]
  - Inflammation [Unknown]
  - Therapeutic product ineffective [Unknown]
  - Product dose omission [Unknown]
  - Bronchitis [Unknown]
  - Cough [Unknown]
  - Product use issue [Recovered/Resolved]
  - Malaise [Unknown]
  - Intentional product misuse [Not Recovered/Not Resolved]

NARRATIVE: CASE EVENT DATE: 201912
